FAERS Safety Report 4649579-5 (Version None)
Quarter: 2005Q2

REPORT INFORMATION
  Report Type: 
  Country: None (occurrence: None)
  Receive Date: 20050331
  Receipt Date: 20050114
  Transmission Date: 20051028
  Serious: No
  Sender: FDA-Public Use
  Company Number: 05P-163-0286728-00

PATIENT
  Age: 49 Year
  Sex: Female
  Weight: 128 kg

DRUGS (23)
  1. HUMIRA [Suspect]
     Indication: RHEUMATOID ARTHRITIS
     Dosage: 40 MG, 1 IN 2 WK, SUBCUTANEOUS
     Route: 058
     Dates: start: 20050114
  2. METHOTREXATE [Concomitant]
  3. INSULIN GLARGINE [Concomitant]
  4. ISONIAZID [Concomitant]
  5. NAPROXEN [Concomitant]
  6. GABAPENTIN [Concomitant]
  7. CEVIMELINE HYDROCHLORIDE [Concomitant]
  8. POTASSIUM CHLORIDE [Concomitant]
  9. FOLIC ACID [Concomitant]
  10. ATENOLOL [Concomitant]
  11. FUROSEMIDE [Concomitant]
  12. ESOMEPRAZOLE [Concomitant]
  13. ATORVASTATIN CALCIUM [Concomitant]
  14. LIBRAX [Concomitant]
  15. CALCIUM GLUCONATE [Concomitant]
  16. MULTI-VITAMINS [Concomitant]
  17. BECOSYM FORTE [Concomitant]
  18. ASCORBIC ACID [Concomitant]
  19. FIBER [Concomitant]
  20. ASPIRIN [Concomitant]
  21. LEVOTHYROXINE SODIUM [Concomitant]
  22. PYRIDOXINE HYDROCHLORIDE [Concomitant]
  23. TOCOPHEROL CONCENTRATE CAP [Concomitant]

REACTIONS (1)
  - INJECTION SITE PAIN [None]
